FAERS Safety Report 9814034 (Version 1)
Quarter: 2014Q1

REPORT INFORMATION
  Report Type: Spontaneous
  Country: CA (occurrence: CA)
  Receive Date: 20140113
  Receipt Date: 20140113
  Transmission Date: 20141002
  Serious: Yes (Congenital Anomaly)
  Sender: FDA-Public Use
  Company Number: PHHY2014CA002679

PATIENT
  Sex: Male
  Weight: 2.7 kg

DRUGS (1)
  1. METFORMIN [Suspect]
     Route: 064

REACTIONS (23)
  - X-linked chromosomal disorder [Unknown]
  - Growth retardation [Unknown]
  - Head circumference abnormal [Unknown]
  - Skin atrophy [Unknown]
  - Low set ears [Unknown]
  - Pigmentation disorder [Unknown]
  - Coloboma [Unknown]
  - Syndactyly [Unknown]
  - Meningomyelocele [Unknown]
  - Arnold-Chiari malformation [Unknown]
  - Atrial septal defect [Unknown]
  - Congenital arterial malformation [Unknown]
  - Cryptorchism [Unknown]
  - Microcephaly [Unknown]
  - Alopecia [Unknown]
  - Dacryostenosis congenital [Unknown]
  - Atrophy [Unknown]
  - Skin lesion [Unknown]
  - Dysplasia [Unknown]
  - Gene mutation [Unknown]
  - Finger deformity [Unknown]
  - Hydrocephalus [Unknown]
  - Foetal exposure during pregnancy [Unknown]
